FAERS Safety Report 20023803 (Version 1)
Quarter: 2021Q4

REPORT INFORMATION
  Report Type: Other
  Country: UA (occurrence: None)
  Receive Date: 20211102
  Receipt Date: 20211102
  Transmission Date: 20220303
  Serious: Yes (Other)
  Sender: FDA-Public Use
  Company Number: UA-ROCHE-2945121

PATIENT

DRUGS (1)
  1. TOCILIZUMAB [Suspect]
     Active Substance: TOCILIZUMAB
     Indication: COVID-19
     Route: 042

REACTIONS (4)
  - Off label use [Unknown]
  - Cellulitis [Unknown]
  - Staphylococcal skin infection [Unknown]
  - Furuncle [Unknown]
